FAERS Safety Report 9860192 (Version 1)
Quarter: 2014Q1

REPORT INFORMATION
  Report Type: Spontaneous
  Country: US (occurrence: US)
  Receive Date: 20140201
  Receipt Date: 20140201
  Transmission Date: 20141002
  Serious: No
  Sender: FDA-Public Use
  Company Number: US-B.I. PHARMACEUTICALS,INC./RIDGEFIELD-2014-BI-03013BP

PATIENT
  Sex: Male

DRUGS (2)
  1. MOBIC [Suspect]
     Indication: ARTHRITIS
  2. BLOOD PRESSURE MEDICATION [Concomitant]

REACTIONS (1)
  - Drug ineffective [Unknown]
